FAERS Safety Report 4394573-5 (Version None)
Quarter: 2004Q3

REPORT INFORMATION
  Report Type: 
  Country: None (occurrence: None)
  Receive Date: 20040712
  Receipt Date: 20040701
  Transmission Date: 20050211
  Serious: Yes (Death, Hospitalization)
  Sender: FDA-Public Use
  Company Number: FR-ROCHE-372647

PATIENT
  Age: 38 Year
  Sex: Female

DRUGS (2)
  1. PEG-INTERFERON ALFA 2A (RO 25-8310) [Suspect]
     Route: 058
     Dates: start: 20040319, end: 20040701
  2. RIBAVIRIN [Suspect]
     Route: 048
     Dates: start: 20040319, end: 20040701

REACTIONS (10)
  - BLOOD CULTURE POSITIVE [None]
  - BONE MARROW DEPRESSION [None]
  - COUGH [None]
  - HYPOTENSION [None]
  - IRRITABILITY [None]
  - PANCYTOPENIA [None]
  - PNEUMOCOCCAL INFECTION [None]
  - PNEUMONIA [None]
  - SEPTIC SHOCK [None]
  - SINUSITIS [None]
